FAERS Safety Report 10538799 (Version 4)
Quarter: 2014Q4

REPORT INFORMATION
  Report Type: Report from Study
  Country: US (occurrence: US)
  Receive Date: 20141023
  Receipt Date: 20141204
  Transmission Date: 20150529
  Serious: Yes (Hospitalization)
  Sender: FDA-Public Use
  Company Number: US-ACTELION-A-US2014-100701

PATIENT
  Age: 56 Year
  Sex: Female

DRUGS (3)
  1. VELETRI [Suspect]
     Active Substance: EPOPROSTENOL
     Indication: PULMONARY HYPERTENSION
     Dosage: 32 NG/KG, PER MIN
     Route: 042
     Dates: start: 20130430
  2. OPSUMIT [Suspect]
     Active Substance: MACITENTAN
     Indication: PULMONARY HYPERTENSION
     Dosage: 10 MG, QD
     Route: 048
     Dates: start: 20140411
  3. OXYGEN. [Concomitant]
     Active Substance: OXYGEN
     Dosage: 6 L/MIN, CONTINUOUS
     Dates: start: 20140409

REACTIONS (4)
  - Wound treatment [Unknown]
  - Dyspnoea [Unknown]
  - Respiratory failure [Unknown]
  - Device issue [Unknown]

NARRATIVE: CASE EVENT DATE: 20140602
